FAERS Safety Report 17907513 (Version 2)
Quarter: 2022Q3

REPORT INFORMATION
  Report Type: Spontaneous
  Country: US (occurrence: US)
  Receive Date: 20200617
  Receipt Date: 20220803
  Transmission Date: 20221027
  Serious: Yes (Death, Other)
  Sender: FDA-Public Use
  Company Number: US-SAARTEMIS-SAC202006160161

PATIENT
  Age: 65 Year
  Sex: Female

DRUGS (1)
  1. ZANTAC [Suspect]
     Active Substance: RANITIDINE HYDROCHLORIDE
     Indication: Dyspepsia
     Dosage: UNK
     Dates: start: 201501, end: 201611

REACTIONS (3)
  - Bladder cancer stage IV [Fatal]
  - Hepatic cancer stage IV [Fatal]
  - Bile duct cancer [Fatal]

NARRATIVE: CASE EVENT DATE: 20171101
